FAERS Safety Report 5080445-X (Version None)
Quarter: 2006Q3

REPORT INFORMATION
  Report Type: 
  Country: None (occurrence: None)
  Receive Date: 20060815
  Receipt Date: 20060803
  Transmission Date: 20061208
  Serious: Yes (Life-Threatening)
  Sender: FDA-Public Use
  Company Number: AU-BRISTOL-MYERS SQUIBB COMPANY-13465745

PATIENT
  Age: 58 Year
  Sex: Female
  Weight: 63 kg

DRUGS (5)
  1. TAXOL [Suspect]
     Indication: OVARIAN CANCER
     Route: 042
     Dates: start: 20060418, end: 20060418
  2. DOLASETRON [Concomitant]
     Indication: PREMEDICATION
     Route: 042
     Dates: start: 20060418, end: 20060418
  3. RANITIDINE [Concomitant]
     Indication: PREMEDICATION
     Route: 042
     Dates: start: 20060418, end: 20060418
  4. DEXAMETHASONE [Concomitant]
     Indication: PREMEDICATION
     Route: 042
     Dates: start: 20060418, end: 20060418
  5. PROMETHAZINE [Concomitant]
     Indication: PREMEDICATION
     Dates: start: 20060418, end: 20060418

REACTIONS (5)
  - BURNING SENSATION [None]
  - CHEST PAIN [None]
  - COUGH [None]
  - DYSPNOEA [None]
  - ERYTHEMA [None]
